FAERS Safety Report 6395884-4 (Version None)
Quarter: 2009Q4

REPORT INFORMATION
  Report Type: 
  Country: None (occurrence: None)
  Receive Date: 20091009
  Receipt Date: 20090810
  Transmission Date: 20100525
  Serious: No
  Sender: FDA-Public Use
  Company Number: A0801359A

PATIENT
  Age: 56 Year
  Sex: Female

DRUGS (14)
  1. TYKERB [Suspect]
     Indication: BREAST CANCER
     Dosage: 5TAB PER DAY
     Route: 048
     Dates: start: 20090701
  2. XELODA [Concomitant]
  3. COMPAZINE [Concomitant]
  4. VITAMIN E [Concomitant]
  5. FOSAMAX [Concomitant]
  6. OSCAL [Concomitant]
  7. WATER PILL [Concomitant]
  8. LIPITOR [Concomitant]
  9. AMITRIPTYLINE [Concomitant]
  10. METOPROLOL SUCCINATE [Concomitant]
  11. LORAZEPAM [Concomitant]
  12. DIOVAN [Concomitant]
  13. TRICOR [Concomitant]
  14. INSULIN [Concomitant]

REACTIONS (1)
  - RASH [None]
